FAERS Safety Report 19838716 (Version 1)
Quarter: 2021Q3

REPORT INFORMATION
  Report Type: Spontaneous
  Country: US (occurrence: US)
  Receive Date: 20210915
  Receipt Date: 20210915
  Transmission Date: 20211014
  Serious: Yes (Life-Threatening, Hospitalization)
  Sender: FDA-Public Use
  Company Number: None

PATIENT
  Age: 83 Year
  Sex: Female

DRUGS (2)
  1. RIVAROXABAN [Suspect]
     Active Substance: RIVAROXABAN
  2. MELOXICAM. [Suspect]
     Active Substance: MELOXICAM

REACTIONS (2)
  - Haemoglobin decreased [None]
  - Deep vein thrombosis [None]

NARRATIVE: CASE EVENT DATE: 20210509
